FAERS Safety Report 5259599-8 (Version None)
Quarter: 2007Q1

REPORT INFORMATION
  Report Type: 
  Country: None (occurrence: None)
  Receive Date: 20070307
  Receipt Date: 20070307
  Transmission Date: 20070707
  Serious: Yes (Death)
  Sender: FDA-Public Use
  Company Number: None

PATIENT
  Age: 71 Year
  Sex: Female
  Weight: 70.3075 kg

DRUGS (1)
  1. LIPITOR [Suspect]
     Indication: BLOOD CHOLESTEROL INCREASED
     Dosage: 10 MG ONE DAILY PO
     Route: 048
     Dates: start: 19980101, end: 20060417

REACTIONS (10)
  - AMYOTROPHIC LATERAL SCLEROSIS [None]
  - APHASIA [None]
  - BULBAR PALSY [None]
  - DYSPHAGIA [None]
  - HERPES ZOSTER [None]
  - JUDGEMENT IMPAIRED [None]
  - MEMORY IMPAIRMENT [None]
  - PERSONALITY CHANGE [None]
  - SPEECH DISORDER [None]
  - WEIGHT DECREASED [None]
